FAERS Safety Report 13844423 (Version 2)
Quarter: 2017Q3

REPORT INFORMATION
  Report Type: Report from Study
  Country: DE (occurrence: DE)
  Receive Date: 20170808
  Receipt Date: 20170829
  Transmission Date: 20171127
  Serious: Yes (Other)
  Sender: FDA-Public Use
  Company Number: DE-OTSUKA-2017_010549

PATIENT
  Age: 51 Year
  Sex: Male
  Weight: 99.1 kg

DRUGS (17)
  1. TOLVAPTAN [Suspect]
     Active Substance: TOLVAPTAN
     Dosage: 30 MG, QD (IN MORNING) 2-0-1
     Route: 048
     Dates: start: 20160216, end: 20160218
  2. TOLVAPTAN [Suspect]
     Active Substance: TOLVAPTAN
     Dosage: 90 MG, QD (IN MORNING) 3-0-1
     Route: 048
     Dates: start: 20160226, end: 20160229
  3. ALLOPURINOL. [Concomitant]
     Active Substance: ALLOPURINOL
     Indication: HYPERURICAEMIA
     Dosage: 100 MG, QD
     Route: 048
     Dates: start: 2015
  4. TOLVAPTAN [Suspect]
     Active Substance: TOLVAPTAN
     Dosage: 15 MG, QD (IN EVENING) 2-0-1
     Route: 048
     Dates: start: 20160216, end: 20160218
  5. VALSARTAN. [Concomitant]
     Active Substance: VALSARTAN
     Indication: HYPERTENSION
     Dosage: 160 MG, BID
     Route: 048
     Dates: start: 20160215
  6. TOLVAPTAN [Suspect]
     Active Substance: TOLVAPTAN
     Dosage: 30 MG, QD (IN EVENING) 2-0-1
     Route: 048
     Dates: start: 20160223, end: 20160225
  7. TOLVAPTAN [Suspect]
     Active Substance: TOLVAPTAN
     Indication: CONGENITAL CYSTIC KIDNEY DISEASE
     Dosage: 90 MG, QD (IN MORNING)
     Route: 048
     Dates: start: 20160301, end: 20160303
  8. TOLVAPTAN [Suspect]
     Active Substance: TOLVAPTAN
     Dosage: 30 MG, QD (IN EVENING)
     Route: 048
     Dates: start: 20160301, end: 20160303
  9. TOLVAPTAN [Suspect]
     Active Substance: TOLVAPTAN
     Dosage: 60 MG, QD (IN MORNING) 2-0-1
     Route: 048
     Dates: start: 20160223, end: 20160225
  10. TOLVAPTAN [Suspect]
     Active Substance: TOLVAPTAN
     Dosage: 30 MG, QD (IN EVENING) 3-0-1
     Route: 048
     Dates: start: 20160226, end: 20160229
  11. FALITHROM [Concomitant]
     Active Substance: PHENPROCOUMON
     Indication: ANTICOAGULANT THERAPY
     Dosage: UNK, QD (DOSE : ACCORDING TO PROTHROMIN TIME)
     Route: 048
     Dates: start: 2013
  12. TOLVAPTAN [Suspect]
     Active Substance: TOLVAPTAN
     Dosage: 15 MG, QD (IN EVENING) 3-0-1
     Route: 048
     Dates: start: 20160219, end: 20160222
  13. LERCANIDIPIN [Concomitant]
     Active Substance: LERCANIDIPINE
     Indication: HYPERTENSION
     Dosage: 10 MG, BID
     Route: 048
     Dates: start: 20160303
  14. TOLVAPTAN [Suspect]
     Active Substance: TOLVAPTAN
     Dosage: PLACEBO, QD (IN EVENING) 1-0-1
     Route: 048
     Dates: start: 20160208, end: 20160215
  15. TOLVAPTAN [Suspect]
     Active Substance: TOLVAPTAN
     Dosage: 45 MG, QD (IN MORNING) 3-0-1
     Route: 048
     Dates: start: 20160219, end: 20160222
  16. LEVETIRACETAM. [Suspect]
     Active Substance: LEVETIRACETAM
     Indication: EPILEPSY
     Dosage: 250 MG, BID
     Route: 048
     Dates: start: 2014
  17. TOLVAPTAN [Suspect]
     Active Substance: TOLVAPTAN
     Dosage: PLACEBO, QD (IN MORNING) 1-0-1
     Route: 048
     Dates: start: 20160208, end: 20160215

REACTIONS (1)
  - Blood bilirubin increased [Recovered/Resolved]

NARRATIVE: CASE EVENT DATE: 20160314
